FAERS Safety Report 7481283-0 (Version None)
Quarter: 2011Q2

REPORT INFORMATION
  Report Type: 
  Country: None (occurrence: None)
  Receive Date: 20110506
  Receipt Date: 20110422
  Transmission Date: 20111010
  Serious: Yes (Other)
  Sender: FDA-Public Use
  Company Number: 2011HGS-002299

PATIENT
  Age: 39 Year
  Sex: Female

DRUGS (5)
  1. PLAQUENIL [Concomitant]
  2. AZASAN (AZATHIOPRINE) [Concomitant]
  3. BENLYSTA [Suspect]
     Indication: SYSTEMIC LUPUS ERYTHEMATOSUS
     Dosage: 10 MG/KG, 1 IN 28 D, INTRAVENOUS
     Route: 042
     Dates: start: 20110421
  4. PREDNISONE [Concomitant]
  5. METHOTREXATE [Concomitant]

REACTIONS (8)
  - CARDIAC FLUTTER [None]
  - INFUSION SITE ERYTHEMA [None]
  - HEART RATE INCREASED [None]
  - INFUSION SITE RASH [None]
  - INFUSION SITE WARMTH [None]
  - HEADACHE [None]
  - ERYTHEMA [None]
  - DIARRHOEA [None]
